FAERS Safety Report 7161728-6 (Version None)
Quarter: 2010Q4

REPORT INFORMATION
  Report Type: 
  Country: None (occurrence: None)
  Receive Date: 20101215
  Receipt Date: 20101202
  Transmission Date: 20110411
  Serious: Yes (Death)
  Sender: FDA-Public Use
  Company Number: DE-ELI_LILLY_AND_COMPANY-DE201012000429

PATIENT
  Age: 14 Year
  Sex: Male

DRUGS (2)
  1. STRATTERA [Suspect]
     Indication: ATTENTION DEFICIT/HYPERACTIVITY DISORDER
     Dosage: 60 MG, UNK
     Route: 048
     Dates: start: 20091101, end: 20100701
  2. MEDIKINET [Concomitant]
     Dates: start: 20101115

REACTIONS (6)
  - AGGRESSION [None]
  - ANGER [None]
  - COMPLETED SUICIDE [None]
  - DEPRESSION [None]
  - DRUG LEVEL DECREASED [None]
  - INTENTIONAL DRUG MISUSE [None]
